FAERS Safety Report 15797750 (Version 1)
Quarter: 2018Q4

REPORT INFORMATION
  Report Type: Spontaneous
  Country: US (occurrence: US)
  Receive Date: 20181228
  Receipt Date: 20181228
  Transmission Date: 20190205
  Serious: No
  Sender: FDA-Public Use
  Company Number: None

PATIENT

DRUGS (2)
  1. SODIUM BICARBONATE SODIUM BICARBONATE [Suspect]
     Active Substance: SODIUM BICARBONATE
     Dosage: ?          OTHER ROUTE:INJECTABLE?
  2. SODIUM BICARBONATE SODIUM BICARBONATE [Suspect]
     Active Substance: SODIUM BICARBONATE
     Dosage: ?          OTHER ROUTE:INJECTABLE?

REACTIONS (3)
  - Product label confusion [None]
  - Wrong product stored [None]
  - Product appearance confusion [None]
